FAERS Safety Report 14341874 (Version 2)
Quarter: 2018Q1

REPORT INFORMATION
  Report Type: Spontaneous
  Country: FR (occurrence: FR)
  Receive Date: 20180102
  Receipt Date: 20180103
  Transmission Date: 20180509
  Serious: Yes (Other)
  Sender: FDA-Public Use
  Company Number: US-ASTRAZENECA-2017SF32540

PATIENT
  Age: 401 Day
  Sex: Female
  Weight: 9 kg

DRUGS (2)
  1. SYNAGIS [Suspect]
     Active Substance: PALIVIZUMAB
     Indication: PROPHYLAXIS
     Route: 030
     Dates: start: 20171213, end: 20171213
  2. SYNAGIS [Suspect]
     Active Substance: PALIVIZUMAB
     Indication: PROPHYLAXIS
     Route: 030
     Dates: start: 20171213, end: 20171213

REACTIONS (4)
  - Crying [Recovered/Resolved]
  - Crying [Recovered/Resolved]
  - Injection site pain [Recovered/Resolved]
  - Breath holding [Recovered/Resolved]

NARRATIVE: CASE EVENT DATE: 20171213
